FAERS Safety Report 11655470 (Version 1)
Quarter: 2015Q4

REPORT INFORMATION
  Report Type: Report from Study
  Country: US (occurrence: US)
  Receive Date: 20151023
  Receipt Date: 20151023
  Transmission Date: 20160304
  Serious: Yes (Disabling, Other)
  Sender: FDA-Public Use
  Company Number: US-BAXTER-2015BAX057394

PATIENT

DRUGS (1)
  1. GENTAMICIN SULFATE IN 0.9% SODIUM CHLORIDE INJECTION [Suspect]
     Active Substance: GENTAMICIN SULFATE
     Indication: FOETAL EXPOSURE TIMING UNSPECIFIED
     Route: 062

REACTIONS (3)
  - Premature baby [Recovered/Resolved]
  - Deafness permanent [Not Recovered/Not Resolved]
  - Foetal exposure during pregnancy [Recovered/Resolved]
